FAERS Safety Report 25078557 (Version 1)
Quarter: 2025Q1

REPORT INFORMATION
  Report Type: Report from Study
  Country: DE (occurrence: DE)
  Receive Date: 20250314
  Receipt Date: 20250314
  Transmission Date: 20250408
  Serious: Yes (Hospitalization)
  Sender: PFIZER
  Company Number: DE-AMGEN-DEUNI2025038306

PATIENT
  Age: 62 Year
  Sex: Female

DRUGS (13)
  1. UNSPECIFIED INGREDIENT [Suspect]
     Active Substance: UNSPECIFIED INGREDIENT
  2. ADALIMUMAB [Suspect]
     Active Substance: ADALIMUMAB
     Indication: Psoriatic arthropathy
     Route: 065
     Dates: start: 20210927, end: 20240116
  3. METHOTREXATE [Concomitant]
     Active Substance: METHOTREXATE
     Dosage: 10 MILLIGRAM, QWK
     Dates: start: 20180822, end: 20240116
  4. PREDNISOLONE [Concomitant]
     Active Substance: PREDNISOLONE
     Dates: start: 20160404, end: 20240116
  5. PREDNISOLONE [Concomitant]
     Active Substance: PREDNISOLONE
     Dates: start: 20240116
  6. ENOXAPARIN [Concomitant]
     Active Substance: ENOXAPARIN
  7. BISOPROLOL [Concomitant]
     Active Substance: BISOPROLOL
  8. PANTOPRAZOLE [Concomitant]
     Active Substance: PANTOPRAZOLE
  9. ALENDRONIC ACID [Concomitant]
     Active Substance: ALENDRONIC ACID
  10. CHOLECALCIFEROL [Concomitant]
     Active Substance: CHOLECALCIFEROL
  11. FOLIC ACID [Concomitant]
     Active Substance: FOLIC ACID
  12. PROCHLORPERAZINE MALEATE [Concomitant]
     Active Substance: PROCHLORPERAZINE MALEATE
  13. HYPROMELLOSES [Concomitant]
     Active Substance: HYPROMELLOSES

REACTIONS (2)
  - Streptococcal sepsis [Not Recovered/Not Resolved]
  - Osteomyelitis bacterial [Not Recovered/Not Resolved]

NARRATIVE: CASE EVENT DATE: 20240116
